FAERS Safety Report 16431276 (Version 1)
Quarter: 2019Q2

REPORT INFORMATION
  Report Type: Spontaneous
  Country: US (occurrence: US)
  Receive Date: 20190614
  Receipt Date: 20190614
  Transmission Date: 20190711
  Serious: Yes (Hospitalization)
  Sender: FDA-Public Use
  Company Number: US-APOTEX-2019AP016550

PATIENT
  Age: 28 Year
  Sex: Female

DRUGS (2)
  1. ACETYLSALICYLIC ACID [Suspect]
     Active Substance: ASPIRIN
     Indication: SUICIDE ATTEMPT
     Dosage: 5 G, UNK (SINGLE DOSE)
     Route: 065
  2. ACETAMINOPHEN. [Suspect]
     Active Substance: ACETAMINOPHEN
     Indication: SUICIDE ATTEMPT
     Dosage: 50 G, UNK (SINGLE DOSE)
     Route: 065

REACTIONS (7)
  - Toxicity to various agents [Unknown]
  - Respiratory alkalosis [Recovered/Resolved]
  - Hypoacusis [Unknown]
  - Metabolic acidosis [Recovered/Resolved]
  - Overdose [Unknown]
  - Exposure during pregnancy [Unknown]
  - Drug level above therapeutic [Recovered/Resolved]
